FAERS Safety Report 7179708-3 (Version None)
Quarter: 2010Q4

REPORT INFORMATION
  Report Type: 
  Country: None (occurrence: None)
  Receive Date: 20101221
  Receipt Date: 20101214
  Transmission Date: 20110411
  Serious: Yes (Other)
  Sender: FDA-Public Use
  Company Number: HU-ROCHE-743947

PATIENT
  Sex: Male

DRUGS (2)
  1. ROFERON-A [Suspect]
     Indication: MALIGNANT MELANOMA
     Route: 065
  2. ROFERON-A [Suspect]
     Dosage: REDUCED TO 3 X 6 IU DAILY
     Route: 065

REACTIONS (1)
  - RHABDOMYOLYSIS [None]
